FAERS Safety Report 15641152 (Version 1)
Quarter: 2018Q4

REPORT INFORMATION
  Report Type: Spontaneous
  Country: US (occurrence: US)
  Receive Date: 20181120
  Receipt Date: 20181120
  Transmission Date: 20190205
  Serious: No
  Sender: FDA-Public Use
  Company Number: US-LUNDBECK-DKLU2056710

PATIENT
  Age: 75 Year
  Sex: Female

DRUGS (1)
  1. NORTHERA [Suspect]
     Active Substance: DROXIDOPA
     Indication: ORTHOSTATIC HYPOTENSION
     Route: 048
     Dates: start: 2016

REACTIONS (4)
  - Fatigue [Unknown]
  - Contusion [Unknown]
  - Asthenia [Unknown]
  - Fall [Unknown]

NARRATIVE: CASE EVENT DATE: 20181017
